FAERS Safety Report 6469412-9 (Version None)
Quarter: 2009Q4

REPORT INFORMATION
  Report Type: 
  Country: None (occurrence: None)
  Receive Date: 20091203
  Receipt Date: 20091127
  Transmission Date: 20100525
  Serious: Yes (Life-Threatening)
  Sender: FDA-Public Use
  Company Number: JP-ELI_LILLY_AND_COMPANY-JP200911000745

PATIENT
  Sex: Male
  Weight: 54 kg

DRUGS (9)
  1. ALIMTA [Suspect]
     Indication: NON-SMALL CELL LUNG CANCER STAGE IV
     Dosage: 793 MG, OTHER
     Route: 042
     Dates: start: 20091020, end: 20091020
  2. CISPLATIN [Concomitant]
     Indication: NON-SMALL CELL LUNG CANCER STAGE IV
     Dosage: 119 MG, UNK
     Route: 042
     Dates: start: 20091020, end: 20091020
  3. GRANISETRON HCL [Concomitant]
     Indication: PROPHYLAXIS OF NAUSEA AND VOMITING
     Route: 042
     Dates: start: 20091020, end: 20091020
  4. PANVITAN [Concomitant]
     Indication: PROPHYLAXIS
     Dosage: 1 G, DAILY (1/D)
     Route: 048
     Dates: start: 20091013
  5. DEXAMETHASONE TAB [Concomitant]
     Indication: NAUSEA
     Dosage: 10 D/F, DAILY (1/D)
     Route: 042
     Dates: start: 20091020, end: 20091022
  6. LASIX [Concomitant]
     Dosage: 20 MG, DAILY (1/D)
     Route: 043
     Dates: start: 20091022, end: 20091022
  7. AMOBAN [Concomitant]
     Indication: INSOMNIA
     Dosage: 7.5 MG, DAILY (1/D)
     Route: 048
     Dates: start: 20091023, end: 20091024
  8. NAUZELIN [Concomitant]
     Indication: PROPHYLAXIS
     Dosage: 10 MG, DAILY (1/D)
     Route: 048
     Dates: start: 20091023, end: 20091026
  9. NAUZELIN [Concomitant]
     Dosage: 60 MG, DAILY (1/D)
     Route: 054
     Dates: start: 20091023, end: 20091026

REACTIONS (2)
  - ACUTE MYOCARDIAL INFARCTION [None]
  - NAUSEA [None]
